FAERS Safety Report 9890416 (Version 1)
Quarter: 2014Q1

REPORT INFORMATION
  Report Type: Report from Study
  Country: US (occurrence: US)
  Receive Date: 20140212
  Receipt Date: 20140212
  Transmission Date: 20141002
  Serious: Yes (Other)
  Sender: FDA-Public Use
  Company Number: US-ASTRAZENECA-2014SE08149

PATIENT
  Age: 76 Year
  Sex: Male
  Weight: 85.3 kg

DRUGS (13)
  1. CRESTOR [Suspect]
     Indication: ANTICOAGULANT THERAPY
     Route: 048
     Dates: start: 200803, end: 201107
  2. CRESTOR [Suspect]
     Indication: ANTICOAGULANT THERAPY
     Route: 048
     Dates: start: 201207, end: 20131211
  3. PLAVIX OR CLOPIDOGREL [Concomitant]
     Indication: ANTICOAGULANT THERAPY
     Route: 048
     Dates: start: 2010
  4. LEVOTHYROXINE [Concomitant]
     Indication: HYPOTHYROIDISM
     Route: 048
  5. METFORMIN [Concomitant]
     Indication: DIABETES MELLITUS
     Route: 048
  6. LANTUS [Concomitant]
     Indication: DIABETES MELLITUS
     Dosage: AVERAGE 45 U HS
     Route: 058
  7. B12 [Concomitant]
     Indication: VITAMIN SUPPLEMENTATION
  8. B6 [Concomitant]
     Indication: VITAMIN SUPPLEMENTATION
  9. LOVAZA [Concomitant]
     Indication: CARDIAC DISORDER
  10. BABY ASPIRIN [Concomitant]
     Indication: CARDIAC DISORDER
     Dates: start: 2010
  11. UNSPECIFIED MEDICATION [Concomitant]
     Indication: BLOOD PRESSURE ABNORMAL
     Dates: start: 2010
  12. ALLOPURINOL [Concomitant]
     Indication: BLOOD URIC ACID
     Dates: start: 201303
  13. LOVASTATIN [Concomitant]
     Dates: end: 201207

REACTIONS (4)
  - Atrioventricular block [Unknown]
  - Vitamin D decreased [Unknown]
  - Pruritus [Recovering/Resolving]
  - Therapeutic response unexpected [Recovered/Resolved]
